FAERS Safety Report 6683073-5 (Version None)
Quarter: 2010Q2

REPORT INFORMATION
  Report Type: 
  Country: None (occurrence: None)
  Receive Date: 20100415
  Receipt Date: 20100409
  Transmission Date: 20101027
  Serious: Yes (Other)
  Sender: FDA-Public Use
  Company Number: PHHY2008BR26707

PATIENT
  Age: 45 Year
  Sex: Female
  Weight: 72 kg

DRUGS (7)
  1. PARLODEL [Suspect]
     Indication: BRAIN NEOPLASM
     Dosage: 2.5 MG, QD (1 TABLET A DAY)
     Route: 048
     Dates: start: 20060101, end: 20070101
  2. PARLODEL [Suspect]
     Indication: BRAIN NEOPLASM
     Dosage: 2.5 MG, QD
     Route: 048
     Dates: start: 20070101
  3. PARLODEL [Suspect]
     Dosage: 2 DF, QD
  4. CIMETIDINE [Concomitant]
     Indication: GASTRITIS
     Dosage: 2 DF, QD
     Route: 048
     Dates: start: 20080401
  5. CIMETIDINE [Concomitant]
     Indication: OESOPHAGEAL PAIN
  6. CIMETIDINE [Concomitant]
  7. NSAID'S [Concomitant]
     Indication: SPINAL COLUMN STENOSIS
     Dosage: PRN

REACTIONS (8)
  - BENIGN TUMOUR EXCISION [None]
  - BIOPSY [None]
  - BRAIN NEOPLASM [None]
  - CRANIECTOMY [None]
  - DRUG DISPENSING ERROR [None]
  - HIGH DENSITY LIPOPROTEIN DECREASED [None]
  - OPERATIVE HAEMORRHAGE [None]
  - OPTIC NERVE DISORDER [None]
